FAERS Safety Report 7286479-9 (Version None)
Quarter: 2011Q1

REPORT INFORMATION
  Report Type: 
  Country: None (occurrence: None)
  Receive Date: 20110210
  Receipt Date: 20110203
  Transmission Date: 20110831
  Serious: Yes (Other)
  Sender: FDA-Public Use
  Company Number: US-CEPHALON-2010005833

PATIENT
  Sex: Female
  Weight: 68 kg

DRUGS (1)
  1. NUVIGIL [Suspect]
     Route: 048

REACTIONS (4)
  - CONFUSIONAL STATE [None]
  - LETHARGY [None]
  - DISTURBANCE IN ATTENTION [None]
  - FEELING ABNORMAL [None]
